FAERS Safety Report 6993649-3 (Version None)
Quarter: 2010Q3

REPORT INFORMATION
  Report Type: 
  Country: None (occurrence: None)
  Receive Date: 20100917
  Receipt Date: 20090924
  Transmission Date: 20110219
  Serious: Yes (Hospitalization, Other)
  Sender: FDA-Public Use
  Company Number: US-ASTRAZENECA-2007UW05950

PATIENT
  Age: 4056 Day
  Sex: Female
  Weight: 104.3 kg

DRUGS (2)
  1. SEROQUEL [Suspect]
     Indication: BIPOLAR DISORDER
     Route: 048
     Dates: start: 20030201, end: 20070901
  2. SEROQUEL [Suspect]
     Dosage: 25-100 MG
     Route: 048
     Dates: start: 20040830

REACTIONS (4)
  - HYPERGLYCAEMIA [None]
  - MENTAL DISORDER [None]
  - PANCREATITIS [None]
  - PANCREATITIS CHRONIC [None]
